FAERS Safety Report 14991883 (Version 1)
Quarter: 2018Q2

REPORT INFORMATION
  Report Type: Spontaneous
  Country: PT (occurrence: FR)
  Receive Date: 20180608
  Receipt Date: 20180608
  Transmission Date: 20180711
  Serious: Yes (Hospitalization, Other)
  Sender: FDA-Public Use
  Company Number: PT-SUNOVION-2018SUN002363

PATIENT

DRUGS (5)
  1. RIVOTRIL [Concomitant]
     Active Substance: CLONAZEPAM
     Dosage: UNKNOWN
     Dates: start: 20180518
  2. KEPPRA [Concomitant]
     Active Substance: LEVETIRACETAM
     Indication: TEMPORAL LOBE EPILEPSY
     Dosage: 2 DF, QD
     Route: 048
     Dates: start: 20180517
  3. KEPPRA [Concomitant]
     Active Substance: LEVETIRACETAM
     Dosage: 4 DF, QD
     Route: 048
  4. NEURONTIN [Concomitant]
     Active Substance: GABAPENTIN
     Indication: TEMPORAL LOBE EPILEPSY
     Dosage: 2000 MG, QD
     Route: 048
  5. ZEBINIX [Suspect]
     Active Substance: ESLICARBAZEPINE ACETATE
     Indication: TEMPORAL LOBE EPILEPSY
     Dosage: 400 MG, QD
     Route: 048
     Dates: start: 20180517, end: 20180518

REACTIONS (10)
  - Depressed level of consciousness [Recovered/Resolved]
  - Memory impairment [Recovered/Resolved]
  - Hyperthermia [Recovered/Resolved]
  - Hyponatraemia [Recovered/Resolved]
  - Nausea [Recovered/Resolved]
  - Confusional state [Recovered/Resolved]
  - Vomiting [Recovered/Resolved]
  - Hyperchlorhydria [Recovered/Resolved]
  - Speech disorder [Recovered/Resolved]
  - Neurologic neglect syndrome [Recovered/Resolved]

NARRATIVE: CASE EVENT DATE: 20180517
